FAERS Safety Report 17370076 (Version 2)
Quarter: 2021Q1

REPORT INFORMATION
  Report Type: Spontaneous
  Country: US (occurrence: US)
  Receive Date: 20200205
  Receipt Date: 20210324
  Transmission Date: 20210419
  Serious: Yes (Hospitalization, Other)
  Sender: FDA-Public Use
  Company Number: US-LUPIN HEALTHCARE (UK) LIMITED-2020-00450

PATIENT
  Sex: Female

DRUGS (1)
  1. CEPHALEXIN CAPSULES USP, 500 MG [Suspect]
     Active Substance: CEPHALEXIN
     Indication: PRODUCT USED FOR UNKNOWN INDICATION
     Dosage: UNK
     Route: 065

REACTIONS (7)
  - Hypertension [Unknown]
  - Lip swelling [Unknown]
  - Pruritus [Unknown]
  - Rash [Unknown]
  - Tachycardia [Unknown]
  - Paraesthesia [Unknown]
  - Product substitution issue [Unknown]
